FAERS Safety Report 15908473 (Version 1)
Quarter: 2019Q1

REPORT INFORMATION
  Report Type: Spontaneous
  Country: GB (occurrence: GB)
  Receive Date: 20190204
  Receipt Date: 20190204
  Transmission Date: 20190417
  Serious: Yes (Other)
  Sender: FDA-Public Use
  Company Number: GB-PFIZER INC-2019047894

PATIENT
  Age: 45 Year
  Sex: Female
  Weight: 42 kg

DRUGS (12)
  1. OXYBUTYNIN. [Concomitant]
     Active Substance: OXYBUTYNIN CHLORIDE
     Dosage: 2 DF, 1X/DAY
     Dates: start: 20180501
  2. GABAPENTIN. [Concomitant]
     Active Substance: GABAPENTIN
     Dosage: 3 DF, DAILY (2 EVERY MORNING AND 1 AT NIGHT)
     Dates: start: 20180711
  3. FERROUS FUMARATE [Concomitant]
     Active Substance: FERROUS FUMARATE
     Dosage: 2 DF, 1X/DAY (FOR THREE MONTHS)
     Dates: start: 20180803
  4. VITAMINS NOS [Concomitant]
     Active Substance: VITAMINS
     Dosage: 1 DF, 1X/DAY
     Dates: start: 20180803
  5. PREGABALIN. [Suspect]
     Active Substance: PREGABALIN
     Dosage: 225 MG, 1X/DAY
     Dates: start: 20181214
  6. PROPRANOLOL [Concomitant]
     Active Substance: PROPRANOLOL HYDROCHLORIDE
     Indication: ANXIETY
     Dosage: 2 DF, 1X/DAY
     Dates: start: 20181026, end: 20181123
  7. OMEPRAZOLE. [Concomitant]
     Active Substance: OMEPRAZOLE
     Dosage: 1 DF, AS NEEDED
     Dates: start: 20180927
  8. HYDROCORTISONE. [Concomitant]
     Active Substance: HYDROCORTISONE
     Dosage: 2 DF, 1X/DAY (APPLY)
     Dates: start: 20171106
  9. MIRTAZAPINE. [Concomitant]
     Active Substance: MIRTAZAPINE
     Dosage: 1 DF, 1X/DAY (AT NIGHT)
     Dates: start: 20181121, end: 20181219
  10. FOLIC ACID. [Concomitant]
     Active Substance: FOLIC ACID
     Dosage: 1 DF, 1X/DAY
     Dates: start: 20180803
  11. DIAZEPAM. [Concomitant]
     Active Substance: DIAZEPAM
     Indication: ANXIETY
     Dosage: 2 DF, 1X/DAY
     Dates: start: 20190111
  12. FLUOXETINE [Concomitant]
     Active Substance: FLUOXETINE HYDROCHLORIDE
     Dosage: 3 DF, 1X/DAY (LONG TERM TREATMENT)
     Dates: start: 20171117

REACTIONS (1)
  - Rash vesicular [Recovering/Resolving]

NARRATIVE: CASE EVENT DATE: 20190111
